FAERS Safety Report 13646995 (Version 2)
Quarter: 2018Q1

REPORT INFORMATION
  Report Type: Spontaneous
  Country: US (occurrence: US)
  Receive Date: 20170613
  Receipt Date: 20180102
  Transmission Date: 20180508
  Serious: Yes (Other)
  Sender: FDA-Public Use
  Company Number: US-INCYTE CORPORATION-2017IN004425

PATIENT

DRUGS (2)
  1. JAKAFI [Suspect]
     Active Substance: RUXOLITINIB
     Indication: PANCYTOPENIA
     Dosage: 15 MG, BID
     Route: 048
     Dates: start: 20160809
  2. JAKAFI [Suspect]
     Active Substance: RUXOLITINIB
     Dosage: 3 TABLETS (15MG) IN THE MORNING; 2 TABLETS(10MG) IN EVENING
     Route: 048
     Dates: start: 20160809

REACTIONS (4)
  - Hypotension [Unknown]
  - Pneumonia [Unknown]
  - Off label use [Not Recovered/Not Resolved]
  - Cerebrovascular accident [Unknown]

NARRATIVE: CASE EVENT DATE: 20160809
